FAERS Safety Report 13103294 (Version 2)
Quarter: 2017Q1

REPORT INFORMATION
  Report Type: Spontaneous
  Country: US (occurrence: US)
  Receive Date: 20170110
  Receipt Date: 20170205
  Transmission Date: 20170428
  Serious: No
  Sender: FDA-Public Use
  Company Number: US-JNJFOC-20161223960

PATIENT
  Sex: Female
  Weight: 61.24 kg

DRUGS (2)
  1. ZYRTEC [Suspect]
     Active Substance: CETIRIZINE HYDROCHLORIDE
     Indication: COW^S MILK INTOLERANCE
     Dosage: HALF TABLET
     Route: 048
  2. ZYRTEC [Suspect]
     Active Substance: CETIRIZINE HYDROCHLORIDE
     Indication: FOOD ALLERGY
     Dosage: HALF TABLET
     Route: 048

REACTIONS (3)
  - Product packaging issue [Unknown]
  - Diarrhoea [Recovered/Resolved]
  - Product use issue [Recovered/Resolved]
